FAERS Safety Report 5517798-1 (Version None)
Quarter: 2007Q4

REPORT INFORMATION
  Report Type: 
  Country: None (occurrence: None)
  Receive Date: 20071113
  Receipt Date: 20071104
  Transmission Date: 20080405
  Serious: Yes (Other)
  Sender: FDA-Public Use
  Company Number: 2007SP022362

PATIENT
  Age: 50 Year
  Sex: Female

DRUGS (6)
  1. RIBAVIRIN [Suspect]
     Indication: HEPATITIS C
     Dosage: PO
     Route: 048
     Dates: start: 20040101, end: 20040101
  2. RIBAVIRIN [Suspect]
     Indication: HEPATITIS C
     Dosage: PO
     Route: 048
     Dates: start: 20070727
  3. PEGASYS [Suspect]
     Indication: HEPATITIS C
     Dates: start: 20040101, end: 20040101
  4. PEGASYS [Suspect]
     Indication: HEPATITIS C
     Dates: start: 20070724
  5. ACTANOL [Concomitant]
  6. INDERAL [Concomitant]

REACTIONS (6)
  - ABDOMINAL PAIN UPPER [None]
  - HEADACHE [None]
  - HEPATIC FIBROSIS [None]
  - MIGRAINE [None]
  - VOMITING [None]
  - WHITE BLOOD CELL COUNT DECREASED [None]
